FAERS Safety Report 6018570-9 (Version None)
Quarter: 2008Q4

REPORT INFORMATION
  Report Type: 
  Country: None (occurrence: None)
  Receive Date: 20081223
  Receipt Date: 20081217
  Transmission Date: 20090506
  Serious: Yes (Hospitalization)
  Sender: FDA-Public Use
  Company Number: US-ROXANE LABORATORIES, INC.-2008-RO-00454RO

PATIENT
  Sex: Male

DRUGS (1)
  1. AZATHIOPRINE [Suspect]

REACTIONS (2)
  - CHEST PAIN [None]
  - PYREXIA [None]
